FAERS Safety Report 7771030-7 (Version None)
Quarter: 2011Q3

REPORT INFORMATION
  Report Type: 
  Country: None (occurrence: None)
  Receive Date: 20110922
  Receipt Date: 20110131
  Transmission Date: 20111222
  Serious: Yes (Hospitalization)
  Sender: FDA-Public Use
  Company Number: US-ASTRAZENECA-2011SE05386

PATIENT
  Age: 41 Year
  Sex: Male
  Weight: 83 kg

DRUGS (6)
  1. SEROQUEL XR [Suspect]
     Indication: BIPOLAR DISORDER
     Route: 048
     Dates: start: 20010101
  2. PAIN MEDICATION [Concomitant]
     Indication: BACK PAIN
  3. CLONOPIN [Concomitant]
  4. EFFEXOR XR [Concomitant]
  5. AMBIEN [Concomitant]
  6. SEROQUEL XR [Suspect]
     Indication: BIPOLAR I DISORDER
     Route: 048
     Dates: start: 20010101

REACTIONS (1)
  - SUICIDAL IDEATION [None]
